FAERS Safety Report 26158091 (Version 2)
Quarter: 2025Q4

REPORT INFORMATION
  Report Type: Spontaneous
  Country: US (occurrence: US)
  Receive Date: 20251215
  Receipt Date: 20251221
  Transmission Date: 20260118
  Serious: No
  Sender: MYLAN
  Company Number: US-MYLANLABS-2025M1105363

PATIENT
  Sex: Female

DRUGS (2)
  1. ESTRADIOL TRANSDERMAL SYSTEM [Suspect]
     Active Substance: ESTRADIOL
     Indication: Menopausal symptoms
     Dosage: 0.05 MILLIGRAM, QD (PER DAY, TWICE WEEKLY)
  2. PROGESTERONE [Concomitant]
     Active Substance: PROGESTERONE
     Dosage: 100 MILLIGRAM, QD (DAILY)
     Route: 061

REACTIONS (8)
  - Dermatitis contact [Unknown]
  - Application site pain [Unknown]
  - Application site urticaria [Unknown]
  - Application site pruritus [Unknown]
  - Application site inflammation [Unknown]
  - Application site exfoliation [Unknown]
  - Application site dryness [Unknown]
  - Product administered at inappropriate site [Unknown]
